FAERS Safety Report 17299992 (Version 1)
Quarter: 2020Q1

REPORT INFORMATION
  Report Type: Spontaneous
  Country: US (occurrence: US)
  Receive Date: 20200122
  Receipt Date: 20200122
  Transmission Date: 20200409
  Serious: No
  Sender: FDA-Public Use
  Company Number: US-ALLERGAN-1926417US

PATIENT
  Age: 84 Year
  Sex: Male
  Weight: 84.81 kg

DRUGS (6)
  1. REFRESH PLUS [Concomitant]
     Active Substance: CARBOXYMETHYLCELLULOSE SODIUM
     Route: 047
  2. RESTASIS [Suspect]
     Active Substance: CYCLOSPORINE
     Indication: DRY EYE
     Dosage: 2-3 DROPS, BID
     Route: 047
  3. REFRESH TEARS [Concomitant]
     Active Substance: CARBOXYMETHYLCELLULOSE SODIUM
     Indication: DRY EYE
     Dosage: VERY RARELY
     Route: 047
  4. LOTS OF SUPPLEMENTS (UNSPECIFED) [Concomitant]
  5. RESTASIS [Suspect]
     Active Substance: CYCLOSPORINE
     Dosage: 2 GTT, BID
     Route: 047
  6. PRN SUPPLEMENT [Concomitant]
     Indication: MACULAR DEGENERATION

REACTIONS (3)
  - Incorrect dose administered [Unknown]
  - Eye discharge [Not Recovered/Not Resolved]
  - Drug ineffective [Unknown]
